FAERS Safety Report 19963155 (Version 1)
Quarter: 2021Q4

REPORT INFORMATION
  Report Type: Spontaneous
  Country: US (occurrence: US)
  Receive Date: 20211016
  Receipt Date: 20211016
  Transmission Date: 20220303
  Serious: Yes (Life-Threatening, Hospitalization, Disabling)
  Sender: FDA-Public Use
  Company Number: None

PATIENT
  Age: 43 Year
  Sex: Male
  Weight: 96.75 kg

DRUGS (7)
  1. ILUMYA [Suspect]
     Active Substance: TILDRAKIZUMAB-ASMN
     Indication: Psoriasis
  2. BACLOFEN [Concomitant]
     Active Substance: BACLOFEN
  3. AMYTRIPTELENE [Concomitant]
  4. OMEPRAZOLE [Concomitant]
     Active Substance: OMEPRAZOLE
  5. PROZAC [Concomitant]
     Active Substance: FLUOXETINE HYDROCHLORIDE
  6. ATORVASTATIN [Concomitant]
     Active Substance: ATORVASTATIN
  7. METRAPOLOL [Concomitant]

REACTIONS (3)
  - Critical illness [None]
  - Immunodeficiency [None]
  - Respiratory tract infection [None]

NARRATIVE: CASE EVENT DATE: 20181108
